FAERS Safety Report 9331534 (Version 3)
Quarter: 2013Q2

REPORT INFORMATION
  Report Type: Spontaneous
  Country: JP (occurrence: None)
  Receive Date: 20130531
  Receipt Date: 20130612
  Transmission Date: 20140414
  Serious: Yes (Other)
  Sender: FDA-Public Use
  Company Number: TCI2013A02960

PATIENT
  Age: 31 Year
  Sex: Female

DRUGS (5)
  1. TAKEPRON OD TABLETS 15 (LANSOPRAZOLE) [Suspect]
     Indication: GASTROOESOPHAGEAL REFLUX DISEASE
     Route: 048
  2. PREDNISOLONE (PREDNISOLONE) [Suspect]
     Route: 048
  3. ALINAMIN-F [Suspect]
     Route: 048
  4. ANTIEPILEPTICS [Concomitant]
  5. ANTIPSYCHOTICS [Concomitant]

REACTIONS (5)
  - Cardio-respiratory arrest [None]
  - Platelet count decreased [None]
  - Red blood cell count decreased [None]
  - White blood cell count decreased [None]
  - Haematocrit decreased [None]
